FAERS Safety Report 10277180 (Version 3)
Quarter: 2014Q3

REPORT INFORMATION
  Report Type: Report from Study
  Country: ES (occurrence: ES)
  Receive Date: 20140703
  Receipt Date: 20140912
  Transmission Date: 20150326
  Serious: Yes (Death, Life-Threatening, Hospitalization, Disabling)
  Sender: FDA-Public Use
  Company Number: PHHO2014ES008468

PATIENT

DRUGS (9)
  1. URALYT URATO [Concomitant]
     Indication: HYPERURICAEMIA
     Dosage: 5 ML, 8H
  2. OMEPRAZOL [Concomitant]
     Active Substance: OMEPRAZOLE
     Indication: PROPHYLAXIS
     Dosage: 20 MG, 24H
     Dates: start: 20140327
  3. PREDNISONA [Concomitant]
     Active Substance: PREDNISONE
     Indication: ANAEMIA
     Dosage: 5 MG, 24H
     Dates: start: 20140327
  4. DUODART [Concomitant]
     Active Substance: DUTASTERIDE\TAMSULOSIN
     Indication: BENIGN PROSTATIC HYPERPLASIA
     Dosage: UNK
     Dates: start: 20140521
  5. ALDACTONE [Concomitant]
     Active Substance: SPIRONOLACTONE
     Indication: HYPERTENSION
     Dosage: 25 MG, 24H
  6. INC424 [Suspect]
     Active Substance: RUXOLITINIB
     Indication: MYELOFIBROSIS
     Dosage: 15 MG, BID
     Route: 048
     Dates: start: 20140426, end: 20140624
  7. KONAKION [Concomitant]
     Active Substance: PHYTONADIONE
     Indication: HYPOCOAGULABLE STATE
     Dosage: 1 ML, BIW
     Dates: start: 20140428
  8. REPAGLINIDE. [Suspect]
     Active Substance: REPAGLINIDE
     Indication: HYPERGLYCAEMIA
     Dosage: 2 MG, QD
     Dates: start: 20140613
  9. ZYLORIC [Concomitant]
     Active Substance: ALLOPURINOL
     Indication: HYPERURICAEMIA
     Dosage: 100 MG, TIW
     Dates: start: 20140327

REACTIONS (5)
  - Respiratory failure [Fatal]
  - Calculus bladder [Not Recovered/Not Resolved]
  - Urinary tract infection [Fatal]
  - Nephrolithiasis [Not Recovered/Not Resolved]
  - Hypoglycaemia [Not Recovered/Not Resolved]

NARRATIVE: CASE EVENT DATE: 20140423
